FAERS Safety Report 6457048-5 (Version None)
Quarter: 2009Q4

REPORT INFORMATION
  Report Type: 
  Country: None (occurrence: None)
  Receive Date: 20091125
  Receipt Date: 20091118
  Transmission Date: 20100525
  Serious: Yes (Other)
  Sender: FDA-Public Use
  Company Number: A0817759A

PATIENT
  Age: 67 Year
  Sex: Female

DRUGS (4)
  1. ADVAIR DISKUS 100/50 [Suspect]
     Route: 055
     Dates: start: 20040101
  2. VENTOLIN [Suspect]
     Indication: ASTHMA
     Route: 055
     Dates: start: 20070101
  3. OXYCODONE WITH TYLENOL [Concomitant]
  4. VALIUM [Concomitant]

REACTIONS (3)
  - CATARACT [None]
  - DRUG INEFFECTIVE [None]
  - DYSPNOEA [None]
